FAERS Safety Report 5563240-4 (Version None)
Quarter: 2007Q4

REPORT INFORMATION
  Report Type: 
  Country: None (occurrence: None)
  Receive Date: 20071217
  Receipt Date: 20070920
  Transmission Date: 20080405
  Serious: Yes (Hospitalization, Other)
  Sender: FDA-Public Use
  Company Number: FR-BRISTOL-MYERS SQUIBB COMPANY-14015515

PATIENT
  Age: 57 Year
  Sex: Female

DRUGS (9)
  1. HOLOXAN [Suspect]
     Indication: LYMPHOMA
     Dates: start: 20041117, end: 20041230
  2. CARBOPLATIN [Suspect]
     Indication: LYMPHOMA
     Dates: start: 20041117, end: 20041230
  3. ETOPOSIDE [Suspect]
     Indication: LYMPHOMA
     Dosage: STARTED FROM 16-NOV-2004 TO 31-DEC-2004 AND RESTARTED NO 08-FEB-2005 TO UNKNOWN
     Dates: start: 20041116
  4. MESNA [Suspect]
  5. CARMUSTINE [Suspect]
     Dates: start: 20050208
  6. RITUXIMAB [Suspect]
     Indication: LYMPHOMA
     Dosage: TAKEN FROM 16-NOV-04 TO 29-DEC-04 RESTARTED ON 22-MAR-05 TO 09-JAN-06
     Dates: start: 20041116, end: 20060109
  7. NEUPOGEN [Suspect]
     Dosage: 1DOSAGE FORM = 300UG
     Dates: start: 20041229
  8. CYTARABINE [Suspect]
     Dates: start: 20050208
  9. MELPHALAN [Suspect]
     Dates: start: 20050208

REACTIONS (2)
  - BRONCHITIS PNEUMOCOCCAL [None]
  - LUNG INFECTION PSEUDOMONAL [None]
